FAERS Safety Report 10712215 (Version 1)
Quarter: 2015Q1

REPORT INFORMATION
  Report Type: Spontaneous
  Country: FR (occurrence: FR)
  Receive Date: 20150114
  Receipt Date: 20150114
  Transmission Date: 20150721
  Serious: Yes (Hospitalization)
  Sender: FDA-Public Use
  Company Number: PHHY2015FR002287

PATIENT
  Age: 11 Day
  Sex: Male
  Weight: 3.3 kg

DRUGS (2)
  1. VANCOMYCIN SANDOZ [Suspect]
     Active Substance: VANCOMYCIN
     Indication: ANTIBIOTIC THERAPY
     Dosage: 90 MG, QD
     Route: 042
     Dates: start: 20141121, end: 20141124
  2. VANCOMYCIN SANDOZ [Suspect]
     Active Substance: VANCOMYCIN
     Dosage: UNK
     Route: 042

REACTIONS (3)
  - Condition aggravated [Not Recovered/Not Resolved]
  - Blood creatinine increased [Not Recovered/Not Resolved]
  - Drug clearance decreased [Recovered/Resolved]

NARRATIVE: CASE EVENT DATE: 20141124
